FAERS Safety Report 19842037 (Version 2)
Quarter: 2021Q4

REPORT INFORMATION
  Report Type: Spontaneous
  Country: US (occurrence: US)
  Receive Date: 20210916
  Receipt Date: 20211025
  Transmission Date: 20220303
  Serious: No
  Sender: FDA-Public Use
  Company Number: US-MILLICENT HOLDINGS LTD.-MILL20210753

PATIENT
  Age: 56 Year
  Sex: Female
  Weight: 62.7 kg

DRUGS (3)
  1. FEMRING [Suspect]
     Active Substance: ESTRADIOL ACETATE
     Indication: Menopausal symptoms
     Dosage: 0.05 MG/DAY
     Route: 067
     Dates: start: 2021
  2. FEMRING [Suspect]
     Active Substance: ESTRADIOL ACETATE
     Dosage: 0.05 MG/DAY
     Route: 067
  3. PROMETRIUM [Concomitant]
     Active Substance: PROGESTERONE
     Indication: Product used for unknown indication
     Dosage: 200 MG
     Route: 048
     Dates: start: 20201120

REACTIONS (3)
  - Drug ineffective [Not Recovered/Not Resolved]
  - Night sweats [Not Recovered/Not Resolved]
  - Hot flush [Not Recovered/Not Resolved]

NARRATIVE: CASE EVENT DATE: 20210101
